FAERS Safety Report 13769515 (Version 1)
Quarter: 2017Q3

REPORT INFORMATION
  Report Type: Spontaneous
  Country: US (occurrence: US)
  Receive Date: 20170719
  Receipt Date: 20170719
  Transmission Date: 20171127
  Serious: Yes (Other)
  Sender: FDA-Public Use
  Company Number: US-PFIZER INC-2017311811

PATIENT
  Sex: Female

DRUGS (1)
  1. LYRICA [Suspect]
     Active Substance: PREGABALIN
     Indication: ARTHRITIS
     Dosage: 50 MG, 4X/DAY

REACTIONS (7)
  - Nerve injury [Unknown]
  - Blindness unilateral [Unknown]
  - Glaucoma [Unknown]
  - Macular degeneration [Unknown]
  - Hypoacusis [Unknown]
  - Stenosis [Unknown]
  - Product use in unapproved indication [Unknown]
